FAERS Safety Report 9771983 (Version 1)
Quarter: 2013Q4

REPORT INFORMATION
  Report Type: Spontaneous
  Country: US (occurrence: US)
  Receive Date: 20131219
  Receipt Date: 20131219
  Transmission Date: 20140711
  Serious: Yes (Hospitalization)
  Sender: FDA-Public Use
  Company Number: US-SA-2013SA131486

PATIENT
  Age: 49 Year
  Sex: Male

DRUGS (4)
  1. LANTUS SOLOSTAR [Suspect]
     Indication: TYPE 2 DIABETES MELLITUS
     Dosage: DOSE: 12 UNITS IN AM AND 17 UNITS IN THE PM. DOSE:33 UNIT(S)
     Route: 051
     Dates: start: 2011
  2. LANTUS [Suspect]
     Route: 065
  3. NOVOLOG [Suspect]
     Route: 065
  4. SOLOSTAR [Concomitant]
     Dates: start: 2011

REACTIONS (2)
  - Localised infection [Unknown]
  - Vomiting [Unknown]
